FAERS Safety Report 11528705 (Version 1)
Quarter: 2015Q3

REPORT INFORMATION
  Report Type: Spontaneous
  Country: US (occurrence: US)
  Receive Date: 20150921
  Receipt Date: 20150921
  Transmission Date: 20151125
  Serious: No
  Sender: FDA-Public Use
  Company Number: US-TEVA-536089USA

PATIENT
  Age: 22 Year
  Sex: Male
  Weight: 76.27 kg

DRUGS (3)
  1. MODAFINIL. [Suspect]
     Active Substance: MODAFINIL
     Indication: INSOMNIA
  2. MODAFINIL. [Suspect]
     Active Substance: MODAFINIL
     Indication: NARCOLEPSY
     Route: 048
     Dates: start: 20150117
  3. ADDERALL [Concomitant]
     Active Substance: AMPHETAMINE ASPARTATE\AMPHETAMINE SULFATE\DEXTROAMPHETAMINE SACCHARATE\DEXTROAMPHETAMINE SULFATE
     Indication: ATTENTION DEFICIT/HYPERACTIVITY DISORDER
     Dosage: 40 MILLIGRAM DAILY;

REACTIONS (2)
  - Fatigue [Not Recovered/Not Resolved]
  - Drug ineffective [Not Recovered/Not Resolved]

NARRATIVE: CASE EVENT DATE: 20150119
